FAERS Safety Report 6546435-2 (Version None)
Quarter: 2010Q1

REPORT INFORMATION
  Report Type: 
  Country: None (occurrence: None)
  Receive Date: 20100122
  Receipt Date: 20100112
  Transmission Date: 20100710
  Serious: Yes (Other)
  Sender: FDA-Public Use
  Company Number: PHHY2009FR57089

PATIENT
  Sex: Male

DRUGS (1)
  1. RITALIN [Suspect]
     Dosage: UNK
     Route: 048
     Dates: start: 20050101, end: 20080101

REACTIONS (1)
  - OBSESSIVE-COMPULSIVE DISORDER [None]
